FAERS Safety Report 4574696-8 (Version None)
Quarter: 2005Q1

REPORT INFORMATION
  Report Type: 
  Country: None (occurrence: None)
  Receive Date: 20050208
  Receipt Date: 20040702
  Transmission Date: 20050727
  Serious: No
  Sender: FDA-Public Use
  Company Number: US-GLAXOSMITHKLINE-A0516910A

PATIENT
  Age: 44 Year
  Sex: Female

DRUGS (3)
  1. PAXIL [Suspect]
     Indication: PANIC DISORDER
     Dosage: 10MG PER DAY
     Route: 048
     Dates: start: 20010101
  2. NORDETTE-21 [Concomitant]
  3. XANAX [Concomitant]

REACTIONS (6)
  - ANXIETY [None]
  - FEELING JITTERY [None]
  - HEART RATE INCREASED [None]
  - NERVOUSNESS [None]
  - PANIC ATTACK [None]
  - SEDATION [None]
